FAERS Safety Report 5722490-4 (Version None)
Quarter: 2008Q2

REPORT INFORMATION
  Report Type: 
  Country: None (occurrence: None)
  Receive Date: 20080425
  Receipt Date: 20080416
  Transmission Date: 20081010
  Serious: Yes (Death, Hospitalization)
  Sender: FDA-Public Use
  Company Number: 2008SP007164

PATIENT
  Sex: Female
  Weight: 94.1 kg

DRUGS (10)
  1. TEMODAR [Suspect]
     Indication: GLIOBLASTOMA MULTIFORME
     Dosage: PO
     Route: 048
     Dates: start: 20080310, end: 20080406
  2. ACYCLOVIR SODIUM [Concomitant]
  3. CEFTRIAXONE [Concomitant]
  4. COLACE [Concomitant]
  5. KYTRIL [Concomitant]
  6. LOVENOX [Concomitant]
  7. PHENYTOIN [Concomitant]
  8. PROCHLORPERAZINE [Concomitant]
  9. ROLAIDS [Concomitant]
  10. VANCOMYCIN [Concomitant]

REACTIONS (9)
  - ALANINE AMINOTRANSFERASE DECREASED [None]
  - ASPARTATE AMINOTRANSFERASE DECREASED [None]
  - CENTRAL NERVOUS SYSTEM INFECTION [None]
  - HAEMATOMA [None]
  - HAEMOGLOBIN DECREASED [None]
  - HYPOCALCAEMIA [None]
  - HYPONATRAEMIA [None]
  - LYMPHOPENIA [None]
  - WOUND DEHISCENCE [None]
